FAERS Safety Report 5329773-0 (Version None)
Quarter: 2007Q2

REPORT INFORMATION
  Report Type: 
  Country: None (occurrence: None)
  Receive Date: 20070521
  Receipt Date: 20070511
  Transmission Date: 20071010
  Serious: Yes (Death, Life-Threatening, Hospitalization, Disabling)
  Sender: FDA-Public Use
  Company Number: FR-AMGEN-UK216117

PATIENT
  Sex: Female
  Weight: 57 kg

DRUGS (14)
  1. MIMPARA [Suspect]
     Indication: HYPERPARATHYROIDISM SECONDARY
     Route: 048
     Dates: start: 20060513, end: 20061219
  2. AMLOR [Concomitant]
     Route: 065
  3. DEDROGYL [Concomitant]
     Route: 065
  4. ASPEGIC 1000 [Concomitant]
     Route: 065
  5. KAYEXALATE [Concomitant]
     Route: 065
  6. ATENOLOL [Concomitant]
     Route: 065
  7. MOTILIUM [Concomitant]
     Route: 065
  8. OGAST [Concomitant]
     Route: 065
  9. MIXTARD HUMAN 70/30 [Concomitant]
     Route: 065
  10. CALCIUM CHLORIDE [Concomitant]
     Route: 065
  11. LASIX [Concomitant]
     Route: 065
  12. TRAMADOL HCL [Concomitant]
     Route: 065
  13. ARANESP [Concomitant]
     Route: 065
  14. RIVOTRIL [Concomitant]
     Route: 065

REACTIONS (5)
  - COMA [None]
  - METABOLIC DISORDER [None]
  - METABOLIC ENCEPHALOPATHY [None]
  - PARTIAL SEIZURES [None]
  - STATUS EPILEPTICUS [None]
